FAERS Safety Report 14948457 (Version 2)
Quarter: 2018Q2

REPORT INFORMATION
  Report Type: Spontaneous
  Country: HR (occurrence: HR)
  Receive Date: 20180529
  Receipt Date: 20180615
  Transmission Date: 20180711
  Serious: Yes (Other)
  Sender: FDA-Public Use
  Company Number: HR-JNJFOC-20180536855

PATIENT
  Sex: Male

DRUGS (5)
  1. LEKADOL [Concomitant]
     Active Substance: ACETAMINOPHEN
     Indication: PAIN
     Dosage: 1-2 TABLETS
     Route: 065
  2. TERTENSIF [Concomitant]
     Active Substance: INDAPAMIDE
     Route: 065
  3. XARELTO [Suspect]
     Active Substance: RIVAROXABAN
     Indication: ATRIAL FIBRILLATION
     Route: 048
     Dates: start: 201510, end: 201805
  4. CONTROLOC [Concomitant]
     Active Substance: PANTOPRAZOLE SODIUM
     Route: 065
  5. IRUMED [Concomitant]
     Route: 065

REACTIONS (7)
  - Transient ischaemic attack [Unknown]
  - Facial nerve disorder [Unknown]
  - Hemiparesis [Unknown]
  - Muscular weakness [Unknown]
  - Aphasia [Unknown]
  - Speech disorder [Unknown]
  - Transient ischaemic attack [Unknown]

NARRATIVE: CASE EVENT DATE: 201801
